FAERS Safety Report 23693095 (Version 1)
Quarter: 2024Q1

REPORT INFORMATION
  Report Type: Spontaneous
  Country: US (occurrence: None)
  Receive Date: 20240330
  Receipt Date: 20240330
  Transmission Date: 20240410
  Serious: Yes (Other)
  Sender: FDA-Public Use
  Company Number: None

PATIENT
  Age: 30 Year
  Sex: Female
  Weight: 83.25 kg

DRUGS (7)
  1. EMGALITY [Suspect]
     Active Substance: GALCANEZUMAB-GNLM
     Indication: Migraine
     Dosage: 1 INJECTION ONCE PER MONTH INTO FAT IN TUMMY
     Route: 050
     Dates: start: 20240303, end: 20240303
  2. DULOXETINE [Concomitant]
     Active Substance: DULOXETINE
  3. LORAZEPAM [Concomitant]
     Active Substance: LORAZEPAM
  4. TRAZODONE [Concomitant]
     Active Substance: TRAZODONE HYDROCHLORIDE
  5. nurtec odt [Concomitant]
  6. multi vitamin [Concomitant]
  7. DOCUSATE [Concomitant]

REACTIONS (5)
  - Feeling abnormal [None]
  - Burning sensation [None]
  - Pain [None]
  - Injection site erythema [None]
  - Pruritus [None]

NARRATIVE: CASE EVENT DATE: 20240303
